FAERS Safety Report 8925038 (Version 1)
Quarter: 2012Q4

REPORT INFORMATION
  Report Type: Spontaneous
  Country: US (occurrence: None)
  Receive Date: 20121126
  Receipt Date: 20121126
  Transmission Date: 20130627
  Serious: Yes (Disabling)
  Sender: FDA-Public Use
  Company Number: None

PATIENT
  Sex: Male
  Weight: 101.61 kg

DRUGS (1)
  1. NAPROSYN [Suspect]
     Indication: PAIN
     Dates: start: 1985, end: 1987

REACTIONS (2)
  - Orchidectomy [None]
  - Renal failure [None]
